FAERS Safety Report 14436180 (Version 1)
Quarter: 2018Q1

REPORT INFORMATION
  Report Type: Spontaneous
  Country: US (occurrence: US)
  Receive Date: 20180124
  Receipt Date: 20180124
  Transmission Date: 20180509
  Serious: Yes (Other)
  Sender: FDA-Public Use
  Company Number: None

PATIENT
  Age: 60 Year
  Sex: Male
  Weight: 63 kg

DRUGS (5)
  1. ASPIRIN. [Concomitant]
     Active Substance: ASPIRIN
  2. CENTRUM SILVER 50+ MEN [Concomitant]
  3. XERMELO [Concomitant]
     Active Substance: TELOTRISTAT ETHYL
  4. CLONAZEPAM. [Concomitant]
     Active Substance: CLONAZEPAM
  5. AFINITOR [Suspect]
     Active Substance: EVEROLIMUS
     Indication: SMALL INTESTINE CARCINOMA
     Route: 048
     Dates: start: 20140814, end: 20180123

REACTIONS (1)
  - Disease progression [None]
